FAERS Safety Report 20774292 (Version 1)
Quarter: 2022Q2

REPORT INFORMATION
  Report Type: Spontaneous
  Country: US (occurrence: None)
  Receive Date: 20220429
  Receipt Date: 20220429
  Transmission Date: 20220720
  Serious: Yes (Disabling)
  Sender: FDA-Public Use
  Company Number: None

PATIENT
  Age: 24 Year
  Sex: Male
  Weight: 67.5 kg

DRUGS (10)
  1. WINLEVI [Suspect]
     Active Substance: CLASCOTERONE
     Indication: Oil acne
     Dosage: OTHER QUANTITY : 1 PEA-SIZED AMOUNT;?FREQUENCY : TWICE A DAY;?
     Route: 061
     Dates: start: 20220406, end: 20220419
  2. CETIRIZINE [Concomitant]
     Active Substance: CETIRIZINE HYDROCHLORIDE
  3. MONTELUKAST SODIUM [Concomitant]
     Active Substance: MONTELUKAST SODIUM
  4. SERTRALINE HYDROCHLORIDE [Concomitant]
     Active Substance: SERTRALINE HYDROCHLORIDE
  5. Dymista 137/50 mcg per spray [Concomitant]
  6. Descovy 300/25 mg [Concomitant]
  7. Breo Ellipta 100/25 mcg [Concomitant]
  8. Tretinoin 0.1% Microspheres [Concomitant]
  9. Clindamycin phosphate 1% lotion [Concomitant]
  10. Panoxyl 10% Body Wash [Concomitant]

REACTIONS (3)
  - Asthenia [None]
  - Fatigue [None]
  - Fatigue [None]

NARRATIVE: CASE EVENT DATE: 20220418
